FAERS Safety Report 9222540 (Version 1)
Quarter: 2013Q1

REPORT INFORMATION
  Report Type: Spontaneous
  Country: US (occurrence: US)
  Receive Date: 20120914
  Receipt Date: 20120914
  Transmission Date: 20140127
  Serious: Yes (Hospitalization, Other)
  Sender: FDA-Public Use
  Company Number: JPI-P-021300

PATIENT
  Age: 87 Year
  Sex: Female

DRUGS (1)
  1. XYREM [Suspect]
     Indication: NARCOLEPSY
     Dosage: (2.25-4.5 GM TWICE NIGHTLY),ORAL
     Route: 048
     Dates: start: 20080623

REACTIONS (5)
  - Hospitalisation [None]
  - Tooth infection [None]
  - Asthenia [None]
  - Diarrhoea [None]
  - Mental impairment [None]
